FAERS Safety Report 7490256-3 (Version None)
Quarter: 2011Q2

REPORT INFORMATION
  Report Type: 
  Country: None (occurrence: None)
  Receive Date: 20110519
  Receipt Date: 20110419
  Transmission Date: 20111010
  Serious: Yes (Hospitalization, Other)
  Sender: FDA-Public Use
  Company Number: US-BAYER-201039621NA

PATIENT
  Age: 23 Year
  Sex: Female
  Weight: 74.83 kg

DRUGS (5)
  1. OMEPRAZOLE [Concomitant]
     Dosage: UNK UNK, TID
     Route: 048
  2. YASMIN [Suspect]
     Indication: ENDOMETRIOSIS
     Dosage: UNK
     Dates: start: 20060101, end: 20070101
  3. YASMIN [Suspect]
     Indication: ACNE
  4. YAZ [Suspect]
     Indication: ENDOMETRIOSIS
     Dosage: UNK
     Dates: start: 20070101, end: 20090101
  5. YAZ [Suspect]
     Indication: ACNE

REACTIONS (3)
  - CHOLECYSTITIS CHRONIC [None]
  - GALLBLADDER DISORDER [None]
  - PAIN [None]
